FAERS Safety Report 5896417-9 (Version None)
Quarter: 2008Q3

REPORT INFORMATION
  Report Type: 
  Country: None (occurrence: None)
  Receive Date: 20080924
  Receipt Date: 20070516
  Transmission Date: 20090109
  Serious: No
  Sender: FDA-Public Use
  Company Number: US-BAYER-200711547BWH

PATIENT
  Age: 28 Year
  Sex: Female

DRUGS (2)
  1. AVELOX [Suspect]
     Indication: CELLULITIS
     Route: 042
     Dates: start: 20070421
  2. AVELOX [Suspect]
     Route: 048
     Dates: start: 20070426, end: 20070502

REACTIONS (2)
  - RASH [None]
  - SWOLLEN TONGUE [None]
